FAERS Safety Report 19039011 (Version 2)
Quarter: 2021Q2

REPORT INFORMATION
  Report Type: Spontaneous
  Country: JP (occurrence: JP)
  Receive Date: 20210322
  Receipt Date: 20210527
  Transmission Date: 20210717
  Serious: Yes (Death, Hospitalization, Other)
  Sender: FDA-Public Use
  Company Number: JP-GLAXOSMITHKLINE-JP2021JPN065493

PATIENT
  Age: 68 Year
  Sex: Male
  Weight: 50.2 kg

DRUGS (34)
  1. XARELTO TABLETS [Concomitant]
     Indication: THROMBOSIS PROPHYLAXIS
     Dosage: 15 MG, QD
     Dates: start: 20170710
  2. LAMICTAL [Suspect]
     Active Substance: LAMOTRIGINE
     Dosage: 50 MG, QD
     Route: 048
     Dates: start: 20170727, end: 20170807
  3. QUETIAPINE FUMARATE TABLET [Concomitant]
     Active Substance: QUETIAPINE FUMARATE
     Indication: SEDATION
     Dosage: 400 MG, QD
     Route: 048
     Dates: start: 20150821, end: 20170807
  4. EPERISONE HYDROCHLORIDE TABLETS [Concomitant]
     Indication: MUSCLE TIGHTNESS
     Dosage: 50 MG, TID
     Dates: start: 20170608
  5. BAYASPIRIN TABLETS [Concomitant]
     Indication: THROMBOSIS PROPHYLAXIS
     Dosage: 100 MG, QD
     Dates: start: 20170710
  6. PARIET TABLET [Concomitant]
     Indication: PEPTIC ULCER
     Dosage: 10 MG, QD
     Dates: start: 20170710
  7. URIEF OD [Concomitant]
     Indication: DYSURIA
     Dosage: 4 MG, BID
     Dates: start: 20170524
  8. AMLODIPINE OD TABLETS [Concomitant]
     Active Substance: AMLODIPINE BESYLATE
     Indication: HYPERTENSION
     Dosage: 2.5 MG, QD
     Dates: start: 20170710
  9. ZETIA TABLETS [Concomitant]
     Indication: HYPERLIPIDAEMIA
     Dosage: 10 MG, QD
     Dates: start: 20170710
  10. PITAVASTATIN CA TABLETS [Concomitant]
     Indication: HYPERLIPIDAEMIA
     Dosage: 2 MG, QD
     Dates: start: 20170710
  11. HOCHU?EKKI?TO [Concomitant]
     Active Substance: UNSPECIFIED INGREDIENT
     Indication: ABDOMINAL DISCOMFORT
     Dosage: 2.5 G, TID
     Dates: start: 20170710
  12. LAMICTAL [Suspect]
     Active Substance: LAMOTRIGINE
     Dosage: 25 MG, QD
     Route: 048
     Dates: start: 20170713, end: 20170726
  13. LORCAM TABLETS [Concomitant]
     Indication: ANALGESIC THERAPY
  14. REBAMIPIDE TABLETS [Concomitant]
     Indication: GASTRIC MUCOSAL LESION
     Dosage: 100 MG, TID
     Dates: start: 20170608
  15. ZEPOLAS TAPE [Concomitant]
     Indication: ANALGESIC THERAPY
     Dosage: 1 DF, QD
     Dates: start: 20170608
  16. CIPROXAN [Concomitant]
     Active Substance: CIPROFLOXACIN
     Indication: URINARY TRACT INFECTION
     Dosage: 200 MG, BID
     Dates: start: 20170524
  17. MOHRUS TAPE [Concomitant]
     Active Substance: KETOPROFEN
     Indication: ANALGESIC THERAPY
  18. LAMICTAL [Suspect]
     Active Substance: LAMOTRIGINE
     Indication: AFFECT LABILITY
     Dosage: 25 MG, QOD
     Route: 048
     Dates: start: 20170629, end: 20170712
  19. LUNESTA TABLETS [Concomitant]
     Indication: INSOMNIA
     Dosage: 2 MG, QD
     Route: 048
     Dates: start: 20161111, end: 20170807
  20. TRAMCET COMBINATION TABLETS [Concomitant]
     Indication: ANALGESIC THERAPY
     Dosage: 1 DF, TID
     Dates: start: 20170608
  21. METOCLOPRAMIDE TABLETS [Concomitant]
     Active Substance: METOCLOPRAMIDE
     Indication: ABDOMINAL DISCOMFORT
     Dosage: 5 MG, TID
     Dates: start: 20170608
  22. ATENOLOL. [Concomitant]
     Active Substance: ATENOLOL
     Indication: HYPERTENSION
     Dosage: 25 MG, QD
     Dates: start: 20170710
  23. ZACRAS COMBINATION TABLETS HD [Concomitant]
     Active Substance: AMLODIPINE BESYLATE\AZILSARTAN
     Indication: HYPERTENSION
     Dosage: 1 DF, QD
     Dates: start: 20170710
  24. DEPAKENE?R TABLET [Concomitant]
     Active Substance: VALPROATE SODIUM
     Indication: AFFECT LABILITY
     Dosage: 400 MG, BID
     Route: 048
     Dates: start: 20160527, end: 20170807
  25. HIRNAMIN TABLET [Concomitant]
     Indication: SEDATION
     Dosage: 12.5 MG, QD
     Route: 048
     Dates: start: 20170629, end: 20170807
  26. FEBURIC TABLETS [Concomitant]
     Active Substance: FEBUXOSTAT
     Indication: BLOOD URIC ACID INCREASED
     Dosage: 40 MG, QD
     Dates: start: 20170710
  27. MIYA?BM [Concomitant]
     Active Substance: CLOSTRIDIUM BUTYRICUM SPORES STRAIN M-55
     Indication: DYSBIOSIS
     Dosage: 1 DF, TID
     Dates: start: 20170710
  28. QUETIAPINE FUMARATE TABLET [Concomitant]
     Active Substance: QUETIAPINE FUMARATE
     Indication: AFFECT LABILITY
  29. LORCAM TABLETS [Concomitant]
     Indication: ANTIINFLAMMATORY THERAPY
     Dosage: 4 MG, TID
     Dates: start: 20170608
  30. DICLOFENAC NA GEL [Concomitant]
     Indication: ANALGESIC THERAPY
     Dosage: UNK
     Dates: start: 20170608
  31. AVOLVE [Suspect]
     Active Substance: DUTASTERIDE
     Indication: BENIGN PROSTATIC HYPERPLASIA
     Dosage: 0.5 MG, QD
     Route: 048
     Dates: start: 20170524
  32. AROFUTO [Concomitant]
     Indication: MUSCLE TIGHTNESS
     Dosage: 20 MG, TID
     Dates: start: 20170714
  33. LOXONIN TABLETS [Concomitant]
     Active Substance: LOXOPROFEN SODIUM
     Indication: ANALGESIC THERAPY
     Dosage: 60 MG, TID
     Dates: start: 20170714
  34. MOHRUS TAPE [Concomitant]
     Active Substance: KETOPROFEN
     Indication: ANTIINFLAMMATORY THERAPY
     Dosage: UNK
     Dates: start: 20170714

REACTIONS (20)
  - Toxic epidermal necrolysis [Fatal]
  - Stevens-Johnson syndrome [Fatal]
  - Oral mucosa erosion [Unknown]
  - Immobilisation syndrome [Unknown]
  - Drug-induced liver injury [Unknown]
  - Erythema [Unknown]
  - Full blood count decreased [Unknown]
  - Lip erosion [Unknown]
  - Cytomegalovirus infection [Unknown]
  - Pyrexia [Unknown]
  - Oropharyngeal pain [Unknown]
  - Acute kidney injury [Unknown]
  - Candida sepsis [Unknown]
  - Pseudomonal sepsis [Unknown]
  - Pneumonia aspiration [Unknown]
  - Respiratory failure [Fatal]
  - Rash [Unknown]
  - Skin exfoliation [Unknown]
  - Blister [Unknown]
  - Gastrointestinal perforation [Unknown]

NARRATIVE: CASE EVENT DATE: 2017
